FAERS Safety Report 10051508 (Version 2)
Quarter: 2014Q2

REPORT INFORMATION
  Report Type: Spontaneous
  Country: US (occurrence: None)
  Receive Date: 20140328
  Receipt Date: 20140407
  Transmission Date: 20141212
  Serious: Yes (Hospitalization, Other)
  Sender: FDA-Public Use
  Company Number: 2014-US-003405

PATIENT
  Age: 70 Year
  Sex: Male
  Weight: 104.3 kg

DRUGS (12)
  1. XYREM (SODIUM OXYBATE) ORAL SOLUTION, 500MG/ML [Suspect]
     Indication: NARCOLEPSY
     Route: 048
     Dates: start: 200506
  2. VANCOMYCIN (VANCOMYCIN HYDROCHLORIDE) [Suspect]
     Indication: STAPHYLOCOCCAL INFECTION
  3. XANAX (ALPRAZOLAM) [Suspect]
  4. FINASTERIDE (FINASTERIDE) [Concomitant]
  5. LEVOTHYROXINE (LEVOTHYROXINE) [Concomitant]
  6. MIRALAX (MACROGOL) [Concomitant]
  7. MORPHINE (MORPHINE SULFATE) [Concomitant]
  8. OMEPRAZOLE (OMEPRAZOLE) [Concomitant]
  9. OXYCODONE /ACETAMINOPHEN (OXYCODONE HYDROCHLORIDE, PARACETAMOL) [Concomitant]
  10. TESTOSTERONE (TESTOSTERONE) [Concomitant]
  11. SYMBICORT (BUDESONIDE, FORMOTEROL FUMARATE) [Concomitant]
  12. VIAGRA (SILDENAFIL CITRATE) [Concomitant]

REACTIONS (14)
  - Road traffic accident [None]
  - Limb injury [None]
  - Leg amputation [None]
  - Limb operation [None]
  - Staphylococcal infection [None]
  - Renal disorder [None]
  - Chronic obstructive pulmonary disease [None]
  - Feeling abnormal [None]
  - Hypertension [None]
  - Phantom pain [None]
  - Paranoia [None]
  - Somnolence [None]
  - Anxiety [None]
  - Nausea [None]
